FAERS Safety Report 8976709 (Version 1)
Quarter: 2012Q4

REPORT INFORMATION
  Report Type: 
  Country: BR (occurrence: BR)
  Receive Date: 20121220
  Receipt Date: 20121220
  Transmission Date: 20130627
  Serious: Yes (Other)
  Sender: FDA-Public Use
  Company Number: BR-BAYER-2012-130522

PATIENT
  Age: 77 Year
  Sex: Female
  Weight: 52 kg

DRUGS (6)
  1. SORAFENIB (RAF KINASE INHIBITOR) [Suspect]
     Indication: HEPATIC NEOPLASM
     Dosage: 4 DF, QD
     Route: 048
     Dates: start: 201110
  2. IMOSEC [Concomitant]
     Indication: DIARRHEA
     Dosage: 1 DF, QD
     Route: 048
     Dates: start: 201110
  3. COBAVITAL [Concomitant]
     Indication: VITAMIN SUPPLEMENTATION
     Dosage: 2 DF, QD
     Route: 048
     Dates: start: 201110, end: 201211
  4. VITERGAN MASTER [Concomitant]
     Indication: VITAMIN SUPPLEMENTATION
     Dosage: 1 DF, QD
     Route: 048
     Dates: start: 201211
  5. ONGLYZA [Concomitant]
     Indication: DIABETES
     Dosage: 1 DF, QD
     Route: 048
     Dates: start: 201206
  6. VITAMINS [Concomitant]
     Indication: VITAMIN SUPPLEMENTATION
     Dosage: 7 gtt, QD
     Route: 048
     Dates: start: 201211

REACTIONS (6)
  - Dysentery [Recovered/Resolved]
  - Skin exfoliation [Not Recovered/Not Resolved]
  - Wound [Not Recovered/Not Resolved]
  - Diarrhoea [Recovered/Resolved]
  - Mobility decreased [Not Recovered/Not Resolved]
  - Hearing impaired [Not Recovered/Not Resolved]
